FAERS Safety Report 19657367 (Version 1)
Quarter: 2021Q3

REPORT INFORMATION
  Report Type: Report from Study
  Country: IT (occurrence: IT)
  Receive Date: 20210804
  Receipt Date: 20210804
  Transmission Date: 20211014
  Serious: Yes (Hospitalization)
  Sender: FDA-Public Use
  Company Number: IT-PFIZER INC-202100947657

PATIENT
  Age: 85 Year
  Sex: Male

DRUGS (7)
  1. BRILIQUE [Concomitant]
     Active Substance: TICAGRELOR
     Dosage: 2 DF
  2. CARDIOASPIRIN [Concomitant]
     Active Substance: ASPIRIN
     Dosage: 100 MG
  3. GLUCOPHAGE [Concomitant]
     Active Substance: METFORMIN HYDROCHLORIDE
     Dosage: 2 DF
  4. PANTORC [Concomitant]
     Active Substance: PANTOPRAZOLE SODIUM
  5. METOPROLOL. [Concomitant]
     Active Substance: METOPROLOL
     Dosage: UNK
  6. RAMIPRIL. [Concomitant]
     Active Substance: RAMIPRIL
     Dosage: 10 MG
  7. TORVAST [Suspect]
     Active Substance: ATORVASTATIN
     Dosage: UNK
     Dates: start: 20210101, end: 20210628

REACTIONS (2)
  - Rhabdomyolysis [Not Recovered/Not Resolved]
  - Dyspnoea exertional [Not Recovered/Not Resolved]

NARRATIVE: CASE EVENT DATE: 20210628
